FAERS Safety Report 25824149 (Version 1)
Quarter: 2025Q3

REPORT INFORMATION
  Report Type: Spontaneous
  Country: US (occurrence: US)
  Receive Date: 20250919
  Receipt Date: 20250919
  Transmission Date: 20251020
  Serious: No
  Sender: AMGEN
  Company Number: US-AMGEN-USASP2025186264

PATIENT
  Age: 82 Year
  Sex: Female
  Weight: 60.317 kg

DRUGS (1)
  1. OTEZLA [Suspect]
     Active Substance: APREMILAST
     Indication: Product used for unknown indication
     Route: 065

REACTIONS (5)
  - Weight decreased [Unknown]
  - Headache [Unknown]
  - Pollakiuria [Unknown]
  - Sleep disorder due to a general medical condition [Unknown]
  - Depression [Unknown]

NARRATIVE: CASE EVENT DATE: 20250601
